FAERS Safety Report 15376090 (Version 1)
Quarter: 2018Q3

REPORT INFORMATION
  Report Type: Spontaneous
  Country: US (occurrence: US)
  Receive Date: 20180912
  Receipt Date: 20180912
  Transmission Date: 20181010
  Serious: No
  Sender: FDA-Public Use
  Company Number: US-ALLERGAN-1816457US

PATIENT

DRUGS (1)
  1. LASTACAFT [Suspect]
     Active Substance: ALCAFTADINE
     Indication: CONJUNCTIVITIS ALLERGIC
     Dosage: UNK
     Route: 047
     Dates: start: 201803

REACTIONS (2)
  - Eye irritation [Unknown]
  - Eye pain [Unknown]
